FAERS Safety Report 16898279 (Version 3)
Quarter: 2019Q4

REPORT INFORMATION
  Report Type: Spontaneous
  Country: ES (occurrence: ES)
  Receive Date: 20191009
  Receipt Date: 20191209
  Transmission Date: 20200122
  Serious: Yes (Other)
  Sender: FDA-Public Use
  Company Number: ES-AUROBINDO-AUR-APL-2019-065019

PATIENT
  Age: 13 Year
  Sex: Male

DRUGS (4)
  1. RALTEGRAVIR. [Suspect]
     Active Substance: RALTEGRAVIR
     Indication: HIV-2 INFECTION
     Dosage: UNK
     Route: 065
  2. LAMIVUDINE. [Suspect]
     Active Substance: LAMIVUDINE
     Indication: HIV-2 INFECTION
     Dosage: UNK
     Route: 065
  3. ABACAVIR. [Suspect]
     Active Substance: ABACAVIR
     Indication: HIV-2 INFECTION
     Dosage: UNK
     Route: 065
  4. RALTEGRAVIR POTASSIUM [Suspect]
     Active Substance: RALTEGRAVIR POTASSIUM
     Indication: HIV-2 INFECTION
     Dosage: UNK
     Route: 048

REACTIONS (5)
  - Drug resistance [Unknown]
  - Product use issue [Unknown]
  - Treatment failure [Unknown]
  - Gene mutation [Unknown]
  - Pathogen resistance [Unknown]
